FAERS Safety Report 14033456 (Version 1)
Quarter: 2017Q4

REPORT INFORMATION
  Report Type: Spontaneous
  Country: US (occurrence: US)
  Receive Date: 20171002
  Receipt Date: 20171002
  Transmission Date: 20180321
  Serious: No
  Sender: FDA-Public Use
  Company Number: None

PATIENT
  Age: 52 Year
  Sex: Female
  Weight: 49.5 kg

DRUGS (8)
  1. TRAMADOL. [Concomitant]
     Active Substance: TRAMADOL
  2. IBUPROFEN. [Concomitant]
     Active Substance: IBUPROFEN
  3. ARMOUR THYROID [Concomitant]
     Active Substance: THYROID, PORCINE
  4. PROPRANOLOL [Concomitant]
     Active Substance: PROPRANOLOL HYDROCHLORIDE
  5. ALPRAXOLAM [Concomitant]
  6. DEXTROAMPHET SACCHARAT, AMPHET ASPARTATE, DEXTROAMPHET SULFATE AND AMPHET SULFAT [Suspect]
     Active Substance: AMPHETAMINE ASPARTATE\AMPHETAMINE SULFATE\DEXTROAMPHETAMINE SACCHARATE\DEXTROAMPHETAMINE SULFATE
     Indication: ATTENTION DEFICIT/HYPERACTIVITY DISORDER
     Dosage: ?          QUANTITY:90 TABLET(S);?
     Route: 048
  7. NUVIGIL [Concomitant]
     Active Substance: ARMODAFINIL
  8. SOMA (GENERIC) [Concomitant]

REACTIONS (11)
  - Panic attack [None]
  - Headache [None]
  - Product substitution issue [None]
  - Heart rate increased [None]
  - Thinking abnormal [None]
  - Anxiety [None]
  - Somnolence [None]
  - Personal relationship issue [None]
  - Hypertension [None]
  - Anger [None]
  - Impaired work ability [None]

NARRATIVE: CASE EVENT DATE: 20170902
